FAERS Safety Report 8884056 (Version 2)
Quarter: 2012Q4

REPORT INFORMATION
  Report Type: Report from Study
  Country: DE (occurrence: DE)
  Receive Date: 20121102
  Receipt Date: 20121115
  Transmission Date: 20130627
  Serious: Yes (Hospitalization)
  Sender: FDA-Public Use
  Company Number: DE-ROCHE-1139172

PATIENT
  Age: 71 Year
  Sex: Female
  Weight: 91.5 kg

DRUGS (12)
  1. BEVACIZUMAB [Suspect]
     Indication: BREAST CANCER
     Dosage: most recent dose prior to event was on 27/Sep/2012
     Route: 042
     Dates: start: 20120802
  2. CAPECITABINE [Suspect]
     Indication: BREAST CANCER
     Dosage: most recent dose prior to event was on 26/Sep/2012
     Route: 048
     Dates: start: 20120802
  3. VINORELBINE [Suspect]
     Indication: BREAST CANCER
     Dosage: most recent dose prior to event was on 27/Sep/2012
     Route: 048
     Dates: start: 20120802
  4. ACETYLSALICYLIC ACID [Concomitant]
     Route: 065
  5. METOPROLOL [Concomitant]
     Route: 065
  6. RAMIPRIL [Concomitant]
     Route: 065
  7. SPIRONOLACTONE [Concomitant]
     Route: 065
  8. TORASEMID [Concomitant]
     Route: 065
  9. CARBIMAZOL [Concomitant]
     Route: 065
  10. SPIRIVA [Concomitant]
     Route: 065
  11. NOVALGIN [Concomitant]
     Route: 065
  12. TAVOR (GERMANY) [Concomitant]
     Route: 065

REACTIONS (1)
  - Supraventricular tachycardia [Recovered/Resolved with Sequelae]
